FAERS Safety Report 8436062-4 (Version None)
Quarter: 2012Q2

REPORT INFORMATION
  Report Type: 
  Country: None (occurrence: None)
  Receive Date: 20120614
  Receipt Date: 20111129
  Transmission Date: 20120825
  Serious: No
  Sender: FDA-Public Use
  Company Number: US-ASTRAZENECA-2011SE69728

PATIENT
  Age: 42 Year
  Sex: Male
  Weight: 84.4 kg

DRUGS (5)
  1. ZYPREXA [Concomitant]
     Indication: MOOD SWINGS
     Route: 048
     Dates: start: 19811110
  2. ATIVAN [Concomitant]
     Indication: SLEEP DISORDER
     Route: 048
     Dates: start: 20101127
  3. ZOLADEX [Suspect]
     Indication: PRIAPISM
     Dosage: 3.6 ONCE
     Route: 058
     Dates: start: 20111027, end: 20111027
  4. SEROQUEL [Suspect]
     Route: 048
  5. LAMICTAL [Concomitant]
     Indication: MOOD SWINGS
     Route: 048
     Dates: start: 20101127

REACTIONS (4)
  - DRUG ADMINISTERED AT INAPPROPRIATE SITE [None]
  - DRUG PRESCRIBING ERROR [None]
  - INJECTION SITE PAIN [None]
  - DRUG INEFFECTIVE [None]
